FAERS Safety Report 7523138-9 (Version None)
Quarter: 2011Q2

REPORT INFORMATION
  Report Type: 
  Country: None (occurrence: None)
  Receive Date: 20110525
  Receipt Date: 20110516
  Transmission Date: 20111010
  Serious: Yes (Hospitalization)
  Sender: FDA-Public Use
  Company Number: 1000020816

PATIENT
  Age: 43 Year
  Sex: Male

DRUGS (3)
  1. ESCITALOPRAM [Suspect]
     Dosage: (10 MG), ORAL
     Route: 048
     Dates: end: 20110225
  2. CHLORAMPHENICOL [Suspect]
     Indication: ALCOHOLISM
     Dosage: ORAL
     Route: 048
     Dates: end: 20110225
  3. NEURONTIN [Suspect]
     Dosage: (300 MG),ORAL
     Dates: end: 20110225

REACTIONS (5)
  - BLOOD GLUCOSE INCREASED [None]
  - HEPATITIS CHOLESTATIC [None]
  - HEPATOSPLENOMEGALY [None]
  - HEPATIC STEATOSIS [None]
  - PLATELET COUNT DECREASED [None]
